FAERS Safety Report 18009733 (Version 3)
Quarter: 2021Q1

REPORT INFORMATION
  Report Type: Spontaneous
  Country: JP (occurrence: JP)
  Receive Date: 20200710
  Receipt Date: 20210310
  Transmission Date: 20210419
  Serious: Yes (Death, Life-Threatening, Hospitalization, Disabling)
  Sender: FDA-Public Use
  Company Number: JP-ELI_LILLY_AND_COMPANY-JP202007003891

PATIENT
  Age: 52 Year
  Sex: Female
  Weight: 32.7 kg

DRUGS (12)
  1. LASIX [Concomitant]
     Active Substance: FUROSEMIDE
     Indication: PRODUCT USED FOR UNKNOWN INDICATION
     Dosage: 20 MG
  2. SAMSCA [Concomitant]
     Active Substance: TOLVAPTAN
     Indication: ATRIAL SEPTAL DEFECT
     Dosage: 7.5 MG, UNKNOWN
     Dates: start: 20180306, end: 20180325
  3. BAKTAR [Concomitant]
     Active Substance: SULFAMETHOXAZOLE\TRIMETHOPRIM
     Indication: PRODUCT USED FOR UNKNOWN INDICATION
     Dosage: 1 DOSAGE FORM, UNKNOWN
     Dates: start: 20180319, end: 20180426
  4. WARFARIN [Concomitant]
     Active Substance: WARFARIN
     Indication: PRODUCT USED FOR UNKNOWN INDICATION
     Dosage: UNK
     Dates: start: 20180915
  5. NEXIUM I.V. [Concomitant]
     Active Substance: ESOMEPRAZOLE SODIUM
     Indication: PRODUCT USED FOR UNKNOWN INDICATION
     Dosage: 20 MG, UNKNOWN
     Dates: start: 20100228
  6. UPTRAVI [Suspect]
     Active Substance: SELEXIPAG
     Indication: PULMONARY ARTERIAL HYPERTENSION
     Dosage: 0.2 MG, BID
     Route: 048
     Dates: start: 20180223, end: 20180403
  7. UPTRAVI [Suspect]
     Active Substance: SELEXIPAG
     Dosage: 0.4 MG, BID
     Route: 048
     Dates: start: 20181003, end: 20181004
  8. SPIRONOLACTONE. [Concomitant]
     Active Substance: SPIRONOLACTONE
     Indication: PRODUCT USED FOR UNKNOWN INDICATION
     Dosage: 25 MG, UNKNOWN
  9. POTASSIUM [Concomitant]
     Active Substance: POTASSIUM
     Indication: PRODUCT USED FOR UNKNOWN INDICATION
     Dosage: 1200 MG, UNKNOWN
     Dates: start: 20180815
  10. MIYA [Concomitant]
     Indication: PRODUCT USED FOR UNKNOWN INDICATION
     Dosage: 3 G, UNKNOWN
     Dates: start: 20180927
  11. ADCIRCA [Suspect]
     Active Substance: TADALAFIL
     Indication: PULMONARY ARTERIAL HYPERTENSION
     Dosage: 40 MG, DAILY
     Route: 065
  12. PREDONINE [PREDNISOLONE ACETATE] [Suspect]
     Active Substance: PREDNISOLONE ACETATE
     Indication: SJOGREN^S SYNDROME
     Dosage: 35 MG, UNKNOWN
     Route: 048
     Dates: start: 20180309

REACTIONS (17)
  - Staphylococcal bacteraemia [Recovered/Resolved]
  - Platelet count decreased [Recovered/Resolved]
  - Pyrexia [Unknown]
  - Blood alkaline phosphatase increased [Recovered/Resolved]
  - Cytomegalovirus syndrome [Recovered/Resolved]
  - Pulmonary congestion [Recovered/Resolved]
  - Post procedural infection [Recovered/Resolved with Sequelae]
  - Hypercapnia [Recovered/Resolved with Sequelae]
  - Respiratory failure [Fatal]
  - Pulmonary hypertension [Fatal]
  - Fall [Recovered/Resolved]
  - Femur fracture [Recovered/Resolved with Sequelae]
  - Femur fracture [Recovered/Resolved with Sequelae]
  - Pneumonia [Recovered/Resolved with Sequelae]
  - Cellulitis [Unknown]
  - Ventricular tachycardia [Recovered/Resolved]
  - Oedema peripheral [Recovered/Resolved]

NARRATIVE: CASE EVENT DATE: 20180305
